FAERS Safety Report 7453316 (Version 3)
Quarter: 2014Q3

REPORT INFORMATION
  Report Type: Report from Study
  Country: JP (occurrence: JP)
  Receive Date: 20100705
  Receipt Date: 20140907
  Transmission Date: 20150326
  Serious: Yes (Death, Life-Threatening, Hospitalization)
  Sender: FDA-Public Use
  Company Number: PHHY2010JP42705

PATIENT
  Age: 62 Year
  Sex: Male
  Weight: 54 kg

DRUGS (10)
  1. PRIMPERAN [Concomitant]
     Active Substance: METOCLOPRAMIDE HYDROCHLORIDE
     Route: 048
     Dates: start: 20100219
  2. LOXONIN [Concomitant]
     Active Substance: LOXOPROFEN SODIUM
     Dates: start: 20100219
  3. NEO-MINOPHAGEN C [Concomitant]
     Active Substance: AMMONIUM GLYCYRRHIZATE
     Dosage: 40 ML, UNK
     Route: 042
  4. ICL670A [Suspect]
     Active Substance: DEFERASIROX
     Indication: IRON OVERLOAD
     Dosage: 1000 MG, DAILY
     Route: 048
     Dates: start: 20100211, end: 20100222
  5. PAZUCROSS [Concomitant]
     Dosage: 500 MG, UNK
     Route: 042
     Dates: start: 20100218, end: 20100221
  6. LAC B [Concomitant]
     Active Substance: BIFIDOBACTERIUM SPP.
     Indication: PROPHYLAXIS
     Dosage: 2 G, UNK
     Route: 048
     Dates: start: 20100221, end: 20100227
  7. VANCOMYCIN HYDROCHLORIDE. [Concomitant]
     Active Substance: VANCOMYCIN HYDROCHLORIDE
     Dosage: 1 G, UNK
     Route: 048
     Dates: start: 20100222, end: 20100306
  8. ADSORBIN [Concomitant]
     Dosage: 2 G, UNK
     Route: 048
     Dates: start: 20100221, end: 20100227
  9. ALBUMIN TANNATE [Concomitant]
     Active Substance: ALBUMIN BOVINE\TANNIC ACID
     Indication: PROPHYLAXIS
     Dosage: 2 G, UNK
     Route: 048
     Dates: start: 20100221, end: 20100227
  10. MILMAG [Concomitant]
     Active Substance: MAGNESIUM HYDROXIDE
     Indication: PROPHYLAXIS
     Route: 048
     Dates: start: 20100212

REACTIONS (10)
  - Cerebral haemorrhage [Fatal]
  - Respiratory failure [Fatal]
  - Hemiplegia [Fatal]
  - Rash [Recovering/Resolving]
  - Pyrexia [Fatal]
  - Depressed level of consciousness [Fatal]
  - Cutaneous vasculitis [Recovering/Resolving]
  - Skin lesion [Recovering/Resolving]
  - Pain [Recovering/Resolving]
  - Erythema [Recovering/Resolving]

NARRATIVE: CASE EVENT DATE: 20100222
